FAERS Safety Report 4945957-5 (Version None)
Quarter: 2006Q1

REPORT INFORMATION
  Report Type: 
  Country: None (occurrence: None)
  Receive Date: 20060117
  Receipt Date: 20041123
  Transmission Date: 20060701
  Serious: No
  Sender: FDA-Public Use
  Company Number: FEI2004-1545

PATIENT
  Age: 22 Year
  Sex: Female
  Weight: 96.6162 kg

DRUGS (1)
  1. INTRAUTERINE COPPER CONTRACEPTIVE [Suspect]
     Indication: CONTRACEPTION
     Dosage: INTRA-UTERINE
     Route: 067
     Dates: start: 20000828, end: 20041122

REACTIONS (3)
  - IUCD COMPLICATION [None]
  - METRORRHAGIA [None]
  - VAGINAL HAEMORRHAGE [None]
